FAERS Safety Report 4643116-7 (Version None)
Quarter: 2005Q2

REPORT INFORMATION
  Report Type: 
  Country: None (occurrence: None)
  Receive Date: 20050421
  Receipt Date: 20050408
  Transmission Date: 20051028
  Serious: Yes (Other)
  Sender: FDA-Public Use
  Company Number: 2005057334

PATIENT
  Sex: Female

DRUGS (10)
  1. BEXTRA [Suspect]
     Indication: RHEUMATOID ARTHRITIS
     Dosage: 20 MG, ORAL
     Route: 048
     Dates: start: 20030716, end: 20050407
  2. DILANTIN [Suspect]
     Indication: CONVULSION
     Dosage: ORAL
     Route: 048
  3. CORTICOSTEROIDS (CORTICOSTEROIDS) [Suspect]
     Indication: ASTHMA
  4. BUPROPION HYDROCHLORIDE [Suspect]
     Indication: ILL-DEFINED DISORDER
  5. NEURONTIN [Suspect]
     Indication: ILL-DEFINED DISORDER
  6. ETANERCEPT (ETANERCEPT) [Concomitant]
  7. PREDNISONE [Concomitant]
  8. VICODIN [Concomitant]
  9. CYCLOBENZAPRINE HYDROCHLORIDE [Concomitant]
  10. LANSOPRAZOLE [Concomitant]

REACTIONS (5)
  - ASTHMA [None]
  - BLOOD PRESSURE INCREASED [None]
  - BRONCHOSPASM [None]
  - CONVULSION [None]
  - WEIGHT INCREASED [None]
